FAERS Safety Report 11999785 (Version 1)
Quarter: 2016Q1

REPORT INFORMATION
  Report Type: Spontaneous
  Country: US (occurrence: None)
  Receive Date: 20160203
  Receipt Date: 20160203
  Transmission Date: 20160526
  Serious: No
  Sender: FDA-Public Use
  Company Number: None

PATIENT

DRUGS (3)
  1. NEUPOGEN [Suspect]
     Active Substance: FILGRASTIM
  2. FLOVENT [Suspect]
     Active Substance: FLUTICASONE PROPIONATE
  3. LIDODERM [Suspect]
     Active Substance: LIDOCAINE
     Dosage: PATCH

REACTIONS (1)
  - Drug prescribing error [None]
